FAERS Safety Report 10627868 (Version 1)
Quarter: 2014Q4

REPORT INFORMATION
  Report Type: Spontaneous
  Country: US (occurrence: US)
  Receive Date: 20141205
  Receipt Date: 20141205
  Transmission Date: 20150529
  Serious: No
  Sender: FDA-Public Use
  Company Number: US-BRISTOL-MYERS SQUIBB COMPANY-20943049

PATIENT
  Age: 70 Year
  Sex: Female

DRUGS (13)
  1. PRAVASTATIN SODIUM. [Suspect]
     Active Substance: PRAVASTATIN SODIUM
  2. KLOR-CON [Concomitant]
     Active Substance: POTASSIUM CHLORIDE
     Dosage: 1 DF: 10 10 MEQ TABLET EXTENDED RELEASE
     Route: 048
  3. TRIAMCINOLONE ACETONIDE CREAM [Concomitant]
     Dosage: 0.1% APPLICATION.
     Route: 061
     Dates: start: 20130226
  4. FUROSEMIDE. [Concomitant]
     Active Substance: FUROSEMIDE
     Dosage: TAB
  5. CELEBREX [Concomitant]
     Active Substance: CELECOXIB
     Dosage: CAPSULE. 1 CAPSULE TWICE A DAY AS NEEDED.
  6. WARFARIN SODIUM. [Concomitant]
     Active Substance: WARFARIN SODIUM
     Dosage: TAB. 1-2 DAILY
     Route: 048
  7. ROBITUSSIN DM [Concomitant]
     Active Substance: DEXTROMETHORPHAN HYDROBROMIDE\GUAIFENESIN
  8. MECLIZINE HCL [Concomitant]
     Active Substance: MECLIZINE HYDROCHLORIDE
     Dosage: TABS.EVERY 6 HOURS AS NEEDED.
     Dates: start: 20130906
  9. TESSALON [Concomitant]
     Active Substance: BENZONATATE
  10. METOPROLOL TARTRATE TABS [Concomitant]
  11. ACETAMINOPHEN. [Concomitant]
     Active Substance: ACETAMINOPHEN
     Dosage: TAB
     Route: 048
  12. LEVOTHYROXINE SODIUM. [Concomitant]
     Active Substance: LEVOTHYROXINE SODIUM
     Dosage: TAB
     Dates: start: 20131223
  13. FLURAZEPAM HCL [Concomitant]
     Active Substance: FLURAZEPAM HYDROCHLORIDE
     Dosage: CAPSULE
     Dates: start: 20100813

REACTIONS (1)
  - Pain [Unknown]
